FAERS Safety Report 15489157 (Version 1)
Quarter: 2018Q4

REPORT INFORMATION
  Report Type: Spontaneous
  Country: US (occurrence: US)
  Receive Date: 20181011
  Receipt Date: 20181011
  Transmission Date: 20190205
  Serious: Yes (Other)
  Sender: FDA-Public Use
  Company Number: None

PATIENT
  Age: 67 Year
  Sex: Female
  Weight: 62.1 kg

DRUGS (8)
  1. OSTEO BI-FLEX [Concomitant]
     Active Substance: CHONDROITIN SULFATE A\GLUCOSAMINE
  2. GERITOL [Concomitant]
     Active Substance: MINERALS\VITAMINS
  3. MAGNESIUM [Concomitant]
     Active Substance: MAGNESIUM
  4. PROBIOTICS [Concomitant]
     Active Substance: PROBIOTICS NOS
  5. IBRANCE [Suspect]
     Active Substance: PALBOCICLIB
     Indication: BREAST CANCER
     Route: 048
     Dates: start: 20171106
  6. LETROZOLE. [Concomitant]
     Active Substance: LETROZOLE
  7. OMEPRAZOLE. [Concomitant]
     Active Substance: OMEPRAZOLE
  8. OSCAL [Concomitant]
     Active Substance: CALCIUM CARBONATE

REACTIONS (2)
  - Pruritus [None]
  - Neuropathy peripheral [None]
